FAERS Safety Report 11655827 (Version 1)
Quarter: 2015Q4

REPORT INFORMATION
  Report Type: Spontaneous
  Country: US (occurrence: US)
  Receive Date: 20151023
  Receipt Date: 20151023
  Transmission Date: 20160304
  Serious: No
  Sender: FDA-Public Use
  Company Number: US-AMGEN-USASP2015098621

PATIENT
  Age: 51 Year
  Sex: Male

DRUGS (2)
  1. KYPROLIS [Suspect]
     Active Substance: CARFILZOMIB
     Dosage: 27MG PER METERED SQUARED WHICH IS 54MG
     Route: 065
     Dates: start: 2015
  2. KYPROLIS [Suspect]
     Active Substance: CARFILZOMIB
     Indication: PLASMA CELL MYELOMA
     Dosage: 27MG PER METERED SQUARED SO HIS DOSE WAS 55MG
     Route: 065
     Dates: start: 20150706

REACTIONS (3)
  - Weight decreased [Unknown]
  - Incorrect dose administered [Unknown]
  - Burning sensation [Unknown]

NARRATIVE: CASE EVENT DATE: 2015
